FAERS Safety Report 4860358-6 (Version None)
Quarter: 2005Q4

REPORT INFORMATION
  Report Type: 
  Country: None (occurrence: None)
  Receive Date: 20051215
  Receipt Date: 20051114
  Transmission Date: 20060501
  Serious: Yes (Death)
  Sender: FDA-Public Use
  Company Number: 12938

PATIENT
  Age: 54 Year
  Sex: Male

DRUGS (9)
  1. VINCRISTINE [Suspect]
     Indication: MULTIPLE MYELOMA
  2. DOXORUBICIN [Suspect]
     Indication: MULTIPLE MYELOMA
  3. METHYLPREDNISOLONE [Suspect]
     Indication: MULTIPLE MYELOMA
  4. CISPLATIN [Suspect]
     Indication: LEUKAEMIA PLASMACYTIC
  5. MELPHALAN [Suspect]
     Indication: MULTIPLE MYELOMA
  6. THALIDOMIDE [Suspect]
     Indication: MULTIPLE MYELOMA
     Dosage: 400 MG DAILY
  7. CYCLOPHOSPHAMIDE [Suspect]
     Indication: LEUKAEMIA PLASMACYTIC
  8. PREDNISONE 50MG TAB [Suspect]
     Indication: MULTIPLE MYELOMA
  9. DEXAMETHASONE [Suspect]
     Indication: LEUKAEMIA PLASMACYTIC

REACTIONS (4)
  - BACTERIAL SEPSIS [None]
  - CARDIAC ARREST [None]
  - LEUKAEMIA PLASMACYTIC [None]
  - PLASMACYTOMA [None]
